FAERS Safety Report 19682218 (Version 1)
Quarter: 2021Q3

REPORT INFORMATION
  Report Type: Spontaneous
  Country: US (occurrence: US)
  Receive Date: 20210811
  Receipt Date: 20210811
  Transmission Date: 20211014
  Serious: Yes (Hospitalization)
  Sender: FDA-Public Use
  Company Number: US-MDD US OPERATIONS-MDD202108-001607

PATIENT
  Age: 64 Year
  Sex: Female

DRUGS (1)
  1. APOKYN [Suspect]
     Active Substance: APOMORPHINE HYDROCHLORIDE
     Indication: PARKINSON^S DISEASE
     Route: 058

REACTIONS (4)
  - Aspiration [Unknown]
  - Gastrostomy [Unknown]
  - Decubitus ulcer [Unknown]
  - Pneumonia [Unknown]

NARRATIVE: CASE EVENT DATE: 20210623
